FAERS Safety Report 24063647 (Version 1)
Quarter: 2024Q3

REPORT INFORMATION
  Report Type: Report from Study
  Country: US (occurrence: None)
  Receive Date: 20240709
  Receipt Date: 20240709
  Transmission Date: 20241016
  Serious: Yes (Hospitalization)
  Sender: ASTRAZENECA
  Company Number: 2024A151495

PATIENT
  Sex: Female
  Weight: 54 kg

DRUGS (1)
  1. TRUQAP [Suspect]
     Active Substance: CAPIVASERTIB
     Indication: Breast cancer female
     Dosage: 2 TABS (320MG) ORALLY TWICE DAILY FOR 4 DAYS ON THEN 3 DAYS OFF
     Route: 048

REACTIONS (2)
  - Urticaria [Recovering/Resolving]
  - Throat tightness [Recovering/Resolving]
